FAERS Safety Report 8309058-0 (Version None)
Quarter: 2012Q2

REPORT INFORMATION
  Report Type: 
  Country: None (occurrence: None)
  Receive Date: 20120424
  Receipt Date: 20120417
  Transmission Date: 20120825
  Serious: Yes (Other)
  Sender: FDA-Public Use
  Company Number: VE-ROCHE-1061196

PATIENT
  Sex: Female
  Weight: 65 kg

DRUGS (5)
  1. RITUXIMAB [Suspect]
     Indication: SPLENIC MARGINAL ZONE LYMPHOMA
     Route: 041
     Dates: start: 20111107
  2. PREDNISONE TAB [Concomitant]
     Indication: LYMPHOMA
     Route: 048
  3. FLUDARABINE PHOSPHATE [Concomitant]
     Indication: LYMPHOMA
     Route: 042
  4. BETAMETHASONE [Concomitant]
     Indication: VASCULITIS
     Route: 061
  5. CYCLOPHOSPHAMIDE [Concomitant]
     Indication: LYMPHOMA
     Route: 042

REACTIONS (2)
  - JOINT SWELLING [None]
  - VASCULITIS [None]
